FAERS Safety Report 14098591 (Version 1)
Quarter: 2017Q4

REPORT INFORMATION
  Report Type: Spontaneous
  Country: RO (occurrence: RO)
  Receive Date: 20171017
  Receipt Date: 20171017
  Transmission Date: 20180321
  Serious: Yes (Other)
  Sender: FDA-Public Use
  Company Number: PHHY2017RO149340

PATIENT
  Age: 47 Year
  Sex: Female

DRUGS (1)
  1. VOTUBIA [Suspect]
     Active Substance: EVEROLIMUS
     Indication: ANGIOMYOLIPOMA
     Dosage: 10 MG, QD
     Route: 048

REACTIONS (8)
  - Gamma-glutamyltransferase increased [Recovered/Resolved]
  - Gingivitis [Recovered/Resolved]
  - Hepatocellular injury [Recovered/Resolved]
  - Anaemia [Recovering/Resolving]
  - Diarrhoea [Recovered/Resolved]
  - Constipation [Recovered/Resolved]
  - Dyslipidaemia [Recovering/Resolving]
  - Stomatitis [Recovered/Resolved]
